FAERS Safety Report 7289098-3 (Version None)
Quarter: 2011Q1

REPORT INFORMATION
  Report Type: 
  Country: None (occurrence: None)
  Receive Date: 20110211
  Receipt Date: 20110202
  Transmission Date: 20110831
  Serious: Yes (Other)
  Sender: FDA-Public Use
  Company Number: US-ASTRAZENECA-2011SE05671

PATIENT
  Age: 66 Year
  Sex: Female
  Weight: 88.5 kg

DRUGS (8)
  1. ARIMIDEX [Suspect]
     Indication: BREAST CANCER
     Route: 048
     Dates: start: 20070701
  2. POTASSIUM [Concomitant]
     Indication: MINERAL SUPPLEMENTATION
  3. SIMVASTATIN [Concomitant]
     Indication: HYPERCHOLESTEROLAEMIA
  4. COREG [Concomitant]
     Indication: HYPERTENSION
  5. FOSAMAX [Concomitant]
  6. TRIAMTERENE [Concomitant]
     Indication: DIURETIC THERAPY
  7. ARIMIDEX [Suspect]
     Route: 048
  8. ALLEGRA [Concomitant]
     Indication: MULTIPLE ALLERGIES

REACTIONS (3)
  - CONVULSION [None]
  - CONDITION AGGRAVATED [None]
  - HOT FLUSH [None]
